FAERS Safety Report 12910784 (Version 1)
Quarter: 2016Q4

REPORT INFORMATION
  Report Type: Spontaneous
  Country: US (occurrence: US)
  Receive Date: 20161104
  Receipt Date: 20161104
  Transmission Date: 20170207
  Serious: No
  Sender: FDA-Public Use
  Company Number: US-JNJFOC-20160924829

PATIENT
  Age: 69 Year
  Sex: Female

DRUGS (1)
  1. XARELTO [Suspect]
     Active Substance: RIVAROXABAN
     Indication: PRODUCT USED FOR UNKNOWN INDICATION
     Route: 048

REACTIONS (3)
  - Ankle fracture [Recovered/Resolved]
  - Fall [Unknown]
  - Ligament sprain [Recovered/Resolved]

NARRATIVE: CASE EVENT DATE: 20160801
